FAERS Safety Report 25791550 (Version 4)
Quarter: 2025Q4

REPORT INFORMATION
  Report Type: Spontaneous
  Country: US (occurrence: US)
  Receive Date: 20250911
  Receipt Date: 20251006
  Transmission Date: 20260117
  Serious: No
  Sender: ASTELLAS
  Company Number: US-ASTELLAS-2025-AER-048408

PATIENT
  Age: 88 Year
  Sex: Female

DRUGS (2)
  1. MYRBETRIQ [Suspect]
     Active Substance: MIRABEGRON
     Indication: Incontinence
     Dosage: EXTENDED RELEASE TABLETS
     Route: 048
  2. MYRBETRIQ [Suspect]
     Active Substance: MIRABEGRON
     Indication: Hypertonic bladder

REACTIONS (2)
  - Urinary incontinence [Recovering/Resolving]
  - Therapy partial responder [Recovering/Resolving]

NARRATIVE: CASE EVENT DATE: 20250101
